FAERS Safety Report 5100617-5 (Version None)
Quarter: 2006Q3

REPORT INFORMATION
  Report Type: 
  Country: None (occurrence: None)
  Receive Date: 20060906
  Receipt Date: 20060823
  Transmission Date: 20061208
  Serious: Yes (Hospitalization)
  Sender: FDA-Public Use
  Company Number: 2006BH012966

PATIENT
  Sex: 0

DRUGS (1)
  1. MORPHINE SULFATE INJ [Suspect]
     Indication: PAIN
     Dosage: INTH
     Route: 037

REACTIONS (1)
  - OVERDOSE [None]
